FAERS Safety Report 13910778 (Version 1)
Quarter: 2017Q3

REPORT INFORMATION
  Report Type: Spontaneous
  Country: BR (occurrence: BR)
  Receive Date: 20170828
  Receipt Date: 20170828
  Transmission Date: 20171127
  Serious: Yes (Death, Hospitalization)
  Sender: FDA-Public Use
  Company Number: BR-EDENBRIDGE PHARMACEUTICALS, LLC-BR-2017EDE000153

PATIENT
  Age: 4 Month
  Sex: Male

DRUGS (3)
  1. POTASSIUM PERMANGANATE [Suspect]
     Active Substance: POTASSIUM PERMANGANATE
     Indication: SKIN LESION
     Dosage: UNK
     Route: 061
  2. BETAMETHASONE. [Suspect]
     Active Substance: BETAMETHASONE
     Indication: SKIN LESION
     Dosage: 1 AMPOULE
     Route: 030
  3. PREDNISOLONE SODIUM PHOSPHATE. [Suspect]
     Active Substance: PREDNISOLONE SODIUM PHOSPHATE
     Indication: SKIN LESION
     Dosage: 0.8 MG/KG, UNK
     Route: 048

REACTIONS (3)
  - Septic shock [Fatal]
  - Cardiac arrest [Fatal]
  - Acarodermatitis [Recovering/Resolving]
